FAERS Safety Report 9628081 (Version 8)
Quarter: 2015Q1

REPORT INFORMATION
  Report Type: Spontaneous
  Country: JP (occurrence: JP)
  Receive Date: 20131017
  Receipt Date: 20150115
  Transmission Date: 20150721
  Serious: Yes (Death, Life-Threatening, Hospitalization, Disabling, Other)
  Sender: FDA-Public Use
  Company Number: JP-AMGEN-JPNSP2013072484

PATIENT
  Age: 56 Year
  Sex: Female
  Weight: 48.5 kg

DRUGS (11)
  1. ENBREL [Suspect]
     Active Substance: ETANERCEPT
     Dosage: 15 MG, WEEKLY
     Route: 058
     Dates: start: 20110512, end: 20120104
  2. ENBREL [Suspect]
     Active Substance: ETANERCEPT
     Dosage: 10 MG, WEEKLY
     Route: 058
     Dates: start: 20120105, end: 20130627
  3. ENBREL [Suspect]
     Active Substance: ETANERCEPT
     Dosage: 25 MG, 2X/WEEK
     Route: 058
     Dates: start: 20091208, end: 20101207
  4. ENBREL [Suspect]
     Active Substance: ETANERCEPT
     Dosage: 25 MG, WEEKLY
     Route: 058
     Dates: start: 20101208, end: 20110511
  5. NOVORAPID [Concomitant]
     Active Substance: INSULIN ASPART
     Indication: DIABETES MELLITUS
     Dosage: 6 IU, 2X/DAY, IN THE MORNING AND IN THE EVENING
     Route: 058
     Dates: start: 20100518, end: 20130922
  6. PREDONINE [Concomitant]
     Active Substance: PREDNISOLONE\PREDNISOLONE ACETATE\PREDNISOLONE SODIUM SUCCINATE
     Indication: RHEUMATOID ARTHRITIS
     Dosage: 6 MG, UNK
     Dates: start: 200907, end: 20130922
  7. LIPITOR [Concomitant]
     Active Substance: ATORVASTATIN CALCIUM
     Indication: HYPERLIPIDAEMIA
     Dosage: 5 MG, 1X/DAY
     Route: 048
     Dates: start: 20100721, end: 20130922
  8. ENBREL [Suspect]
     Active Substance: ETANERCEPT
     Indication: RHEUMATOID ARTHRITIS
     Dosage: 25 MG, 2X/WEEK
     Route: 058
     Dates: start: 200908, end: 20091102
  9. ENBREL [Suspect]
     Active Substance: ETANERCEPT
     Dosage: 25 MG, 2X/WEEK
     Route: 058
     Dates: start: 201307
  10. ACTARIT [Concomitant]
     Active Substance: ACTARIT
     Indication: RHEUMATOID ARTHRITIS
     Dosage: UNK
     Dates: start: 200710, end: 200909
  11. SENNA [Concomitant]
     Active Substance: SENNA LEAF\SENNOSIDES\SENNOSIDES A AND B
     Indication: CONSTIPATION
     Dosage: 3 G, 1X/DAY
     Route: 048
     Dates: start: 20091013, end: 20130922

REACTIONS (11)
  - Hypogammaglobulinaemia [Fatal]
  - Wound infection [Fatal]
  - Cardiac failure congestive [Fatal]
  - Pneumonia [Unknown]
  - Acute myocardial infarction [Recovered/Resolved]
  - Thermal burn [Unknown]
  - Skin ulcer [Fatal]
  - Cellulitis [Fatal]
  - Sepsis [Fatal]
  - Pseudomembranous colitis [Fatal]
  - Osteomyelitis [Fatal]

NARRATIVE: CASE EVENT DATE: 201004
